FAERS Safety Report 14675799 (Version 1)
Quarter: 2018Q1

REPORT INFORMATION
  Report Type: Report from Study
  Country: DE (occurrence: DE)
  Receive Date: 20180323
  Receipt Date: 20180323
  Transmission Date: 20180509
  Serious: Yes (Other)
  Sender: FDA-Public Use
  Company Number: DE-PFIZER INC-2018117426

PATIENT

DRUGS (5)
  1. BUPIVACAINE. [Concomitant]
     Active Substance: BUPIVACAINE
     Indication: ANAESTHESIA
     Dosage: 2.5 MG/KG, UNK
     Route: 008
  2. DEXDOR [Suspect]
     Active Substance: DEXMEDETOMIDINE HYDROCHLORIDE
     Dosage: CONTINUOUS INFUSION 1-2UG/KG/H
     Route: 042
  3. EPINEPHRINE. [Concomitant]
     Active Substance: EPINEPHRINE
     Indication: ANAESTHESIA
     Dosage: 5-10 UG/KG
     Route: 008
  4. EMLA [Concomitant]
     Active Substance: LIDOCAINE\PRILOCAINE
     Indication: LOCAL ANAESTHESIA
     Dosage: UNK
     Route: 061
  5. DEXDOR [Suspect]
     Active Substance: DEXMEDETOMIDINE HYDROCHLORIDE
     Indication: SEDATION
     Dosage: 0.2-0.5 UG/KG, WERE ADMINISTERED IN 5-10 MIN
     Route: 040

REACTIONS (2)
  - Drug administered to patient of inappropriate age [Unknown]
  - Neonatal hypotension [Unknown]
